FAERS Safety Report 4407574-5 (Version None)
Quarter: 2004Q3

REPORT INFORMATION
  Report Type: 
  Country: None (occurrence: None)
  Receive Date: 20040721
  Receipt Date: 20040709
  Transmission Date: 20050211
  Serious: Yes (Hospitalization)
  Sender: FDA-Public Use
  Company Number: JP-2004-027616

PATIENT
  Age: 33 Year
  Sex: Male
  Weight: 57 kg

DRUGS (7)
  1. MAGNEVIST [Suspect]
     Indication: NUCLEAR MAGNETIC RESONANCE IMAGING
     Dosage: 15 ML, 1 DOSE, INTRAVENOUS
     Route: 042
     Dates: start: 20040616, end: 20040616
  2. FLOMOX (CEFCAPENE PIVOXIL HYDROCHLORIDE) [Concomitant]
  3. BRUFEN [Concomitant]
  4. MARZULENE S (SODIUM GUALENATE, LEVOGLUTAMIDE) POWDER [Concomitant]
  5. GLYCEOL (GLYCEROL, FRUCTOSE) INJECTION [Concomitant]
  6. ZOVIRAX (ACICLOVIR SODIUM) INJECTION [Concomitant]
  7. HUMULIN R [Concomitant]

REACTIONS (7)
  - ANXIETY [None]
  - BLINDNESS TRANSIENT [None]
  - CONTRAST MEDIA REACTION [None]
  - CSF TEST ABNORMAL [None]
  - MENTAL DISORDER [None]
  - VISUAL DISTURBANCE [None]
  - VOMITING [None]
